FAERS Safety Report 7438714-1 (Version None)
Quarter: 2011Q2

REPORT INFORMATION
  Report Type: 
  Country: None (occurrence: None)
  Receive Date: 20110426
  Receipt Date: 20110421
  Transmission Date: 20111010
  Serious: Yes (Death, Other)
  Sender: FDA-Public Use
  Company Number: JP-PFIZER INC-2011053665

PATIENT
  Age: 81 Year
  Sex: Male
  Weight: 48 kg

DRUGS (4)
  1. NOVOLIN R [Concomitant]
     Dosage: 100 UNITS/ML, A DAY
  2. MODACIN [Concomitant]
     Dosage: 1 G, A DAY
  3. ZYVOX [Suspect]
     Dosage: 600 MG, 2X/DAY
     Route: 041
     Dates: start: 20110225, end: 20110307
  4. GASTER [Concomitant]
     Dosage: 20 MG, A DAY

REACTIONS (1)
  - PANCYTOPENIA [None]
